FAERS Safety Report 5069451-9 (Version None)
Quarter: 2006Q3

REPORT INFORMATION
  Report Type: 
  Country: None (occurrence: None)
  Receive Date: 20060802
  Receipt Date: 20060802
  Transmission Date: 20061208
  Serious: No
  Sender: FDA-Public Use
  Company Number: None

PATIENT
  Sex: Male

DRUGS (1)
  1. ISOVUE-300 [Suspect]
     Indication: DIAGNOSTIC PROCEDURE
     Dosage: 100 CC ONCE IV
     Route: 042
     Dates: start: 20060731

REACTIONS (2)
  - ERYTHEMA [None]
  - POST PROCEDURAL COMPLICATION [None]
